FAERS Safety Report 17417021 (Version 1)
Quarter: 2020Q1

REPORT INFORMATION
  Report Type: Spontaneous
  Country: FR (occurrence: FR)
  Receive Date: 20200214
  Receipt Date: 20200214
  Transmission Date: 20200409
  Serious: Yes (Other)
  Sender: FDA-Public Use
  Company Number: FR-MYLANLABS-2020M1016265

PATIENT
  Age: 36 Year
  Sex: Male

DRUGS (3)
  1. TRAMADOL. [Suspect]
     Active Substance: TRAMADOL
     Indication: PRODUCT USED FOR UNKNOWN INDICATION
     Dosage: UNK
     Route: 065
  2. ALCOHOL. [Suspect]
     Active Substance: ALCOHOL
     Indication: PRODUCT USED FOR UNKNOWN INDICATION
     Dosage: UNK
     Route: 065
  3. BUPRENORPHINE. [Suspect]
     Active Substance: BUPRENORPHINE
     Indication: PRODUCT USED FOR UNKNOWN INDICATION
     Dosage: UNK
     Route: 065

REACTIONS (10)
  - Confusional state [Unknown]
  - Logorrhoea [Unknown]
  - Heart rate increased [Unknown]
  - Agitation [Unknown]
  - Hypertonia [Unknown]
  - Blood creatine phosphokinase increased [Unknown]
  - Miosis [Unknown]
  - Aggression [Unknown]
  - Salivary hypersecretion [Unknown]
  - Blood pressure increased [Unknown]
